FAERS Safety Report 24407364 (Version 3)
Quarter: 2025Q3

REPORT INFORMATION
  Report Type: Spontaneous
  Country: CN (occurrence: CN)
  Receive Date: 20241007
  Receipt Date: 20250803
  Transmission Date: 20251021
  Serious: Yes (Disabling, Other)
  Sender: ALEXION PHARMACEUTICALS
  Company Number: CN-ASTRAZENECA-202409CHN001603CN

PATIENT
  Age: 70 Year
  Sex: Female
  Weight: 45 kg

DRUGS (9)
  1. TAGRISSO [Suspect]
     Active Substance: OSIMERTINIB
     Indication: Lung neoplasm malignant
     Dosage: 80 MILLIGRAM, QD
     Dates: start: 20240824, end: 20240831
  2. PEMETREXED DISODIUM [Suspect]
     Active Substance: PEMETREXED DISODIUM
     Indication: Lung neoplasm malignant
     Dosage: UNK UNK, QD
     Dates: start: 20240817, end: 20240817
  3. PEMETREXED DISODIUM [Suspect]
     Active Substance: PEMETREXED DISODIUM
     Indication: Lung neoplasm malignant
     Dosage: UNK UNK, QD
     Dates: start: 20240817, end: 20240817
  4. BEVACIZUMAB [Suspect]
     Active Substance: BEVACIZUMAB
     Indication: Lung neoplasm malignant
     Dosage: 300 MILLIGRAM, QD
     Dates: start: 20240817, end: 20240817
  5. CISPLATIN [Suspect]
     Active Substance: CISPLATIN
     Indication: Lung neoplasm malignant
     Dosage: 30 MILLIGRAM, QD
     Dates: start: 20240817, end: 20240819
  6. SODIUM CHLORIDE [Concomitant]
     Active Substance: SODIUM CHLORIDE
     Indication: Drug therapy
     Dosage: 250 MILLILITER, QD
     Dates: start: 20240817, end: 20240817
  7. SODIUM CHLORIDE [Concomitant]
     Active Substance: SODIUM CHLORIDE
     Indication: Drug therapy
     Dosage: 100 MILLILITER, QD
     Dates: start: 20240817, end: 20240817
  8. SODIUM CHLORIDE [Concomitant]
     Active Substance: SODIUM CHLORIDE
     Indication: Drug therapy
     Dosage: 250 MILLILITER, QD
     Dates: start: 20240817, end: 20240817
  9. DEXTROSE [Concomitant]
     Active Substance: DEXTROSE MONOHYDRATE
     Indication: Drug therapy
     Dosage: 500 MILLILITER, QD
     Dates: start: 20240817, end: 20240819

REACTIONS (2)
  - White blood cell count decreased [Recovering/Resolving]
  - Granulocyte count decreased [Recovering/Resolving]

NARRATIVE: CASE EVENT DATE: 20240908
